FAERS Safety Report 16990642 (Version 1)
Quarter: 2019Q4

REPORT INFORMATION
  Report Type: Spontaneous
  Country: US (occurrence: US)
  Receive Date: 20191104
  Receipt Date: 20191104
  Transmission Date: 20200122
  Serious: No
  Sender: FDA-Public Use
  Company Number: US-GILEAD-2019-0433539

PATIENT
  Age: 54 Year
  Sex: Female
  Weight: 107.48 kg

DRUGS (1)
  1. BIKTARVY [Suspect]
     Active Substance: BICTEGRAVIR SODIUM\EMTRICITABINE\TENOFOVIR ALAFENAMIDE FUMARATE
     Indication: HIV INFECTION
     Dosage: 50/200/25 MG
     Route: 048
     Dates: start: 20190919, end: 20191007

REACTIONS (1)
  - Periorbital swelling [Recovered/Resolved]

NARRATIVE: CASE EVENT DATE: 20190919
